FAERS Safety Report 9288270 (Version 1)
Quarter: 2013Q2

REPORT INFORMATION
  Report Type: Report from Study
  Country: US (occurrence: US)
  Receive Date: 20130514
  Receipt Date: 20130514
  Transmission Date: 20140414
  Serious: Yes (Hospitalization, Disabling, Other)
  Sender: FDA-Public Use
  Company Number: PHEH2013US007336

PATIENT
  Age: 65 Year
  Sex: Female
  Weight: 59.41 kg

DRUGS (6)
  1. AFINITOR [Suspect]
     Indication: BREAST CANCER METASTATIC
     Dosage: 10 MG, DAILY
     Route: 048
     Dates: start: 20130116, end: 20130217
  2. ALBUTEROL [Concomitant]
     Dosage: 90 MG
  3. AROMASIN [Concomitant]
     Indication: BREAST CANCER METASTATIC
     Dosage: 25 MG/DAY
     Route: 048
     Dates: start: 20130116, end: 20130508
  4. ZOMETA [Concomitant]
     Indication: BREAST CANCER METASTATIC
     Dosage: 4 MG
     Dates: start: 20101021
  5. IBUPROFEN [Concomitant]
     Route: 048
  6. MAGIC MOUTHWASH [Concomitant]
     Route: 048

REACTIONS (2)
  - Ejection fraction [Not Recovered/Not Resolved]
  - Cardiac failure congestive [Unknown]
